FAERS Safety Report 14310260 (Version 4)
Quarter: 2020Q2

REPORT INFORMATION
  Report Type: Spontaneous
  Country: US (occurrence: US)
  Receive Date: 20171220
  Receipt Date: 20200504
  Transmission Date: 20200713
  Serious: Yes (Death, Hospitalization)
  Sender: FDA-Public Use
  Company Number: US-CELGENEUS-USA-20171205628

PATIENT
  Age: 65 Year
  Sex: Male

DRUGS (28)
  1. ONDANSETRON [Concomitant]
     Active Substance: ONDANSETRON
     Indication: PROPHYLAXIS OF NAUSEA AND VOMITING
     Dosage: 8 MILLIGRAM
     Route: 048
     Dates: start: 20170308
  2. METFORMIN [Concomitant]
     Active Substance: METFORMIN HYDROCHLORIDE
     Indication: DIABETES MELLITUS
     Dosage: 1000 MILLIGRAM
     Route: 048
     Dates: start: 20170316
  3. ALTEPLASE. [Concomitant]
     Active Substance: ALTEPLASE
     Indication: PROPHYLAXIS
     Dosage: 2 MILLIGRAM
     Route: 041
     Dates: start: 20170407
  4. DIPHENHYDRAMINE HYDROCHLORIDE. [Concomitant]
     Active Substance: DIPHENHYDRAMINE HYDROCHLORIDE
     Indication: PREMEDICATION
  5. PARACETAMOL [Concomitant]
     Active Substance: ACETAMINOPHEN
     Indication: TRANSFUSION
     Dosage: 650 MILLIGRAM
     Route: 048
     Dates: start: 20170206
  6. TRAMADOL HYDROCHLORIDE. [Concomitant]
     Active Substance: TRAMADOL HYDROCHLORIDE
     Indication: PAIN
     Dosage: 50 MILLIGRAM
     Route: 048
     Dates: start: 20170207
  7. TEMAZEPAM. [Concomitant]
     Active Substance: TEMAZEPAM
     Indication: INSOMNIA
     Dosage: 30 MILLIGRAM
     Route: 048
     Dates: start: 20170321
  8. ATORVASTATIN CALCIUM. [Concomitant]
     Active Substance: ATORVASTATIN CALCIUM
     Indication: HYPERLIPIDAEMIA
     Dosage: 80 MILLIGRAM
     Route: 048
     Dates: start: 20170329
  9. AGGRENOX [Concomitant]
     Active Substance: ASPIRIN\DIPYRIDAMOLE
     Indication: CEREBROVASCULAR ACCIDENT
     Dosage: 25-200 MG
     Route: 048
     Dates: start: 20170329
  10. LEVOTHYROXINE SODIUM. [Concomitant]
     Active Substance: LEVOTHYROXINE SODIUM
     Indication: HYPOTHYROIDISM
     Dosage: 25 MICROGRAM
     Route: 048
     Dates: start: 20170512
  11. PARACETAMOL [Concomitant]
     Active Substance: ACETAMINOPHEN
     Indication: PREMEDICATION
  12. VENETOCLAX. [Concomitant]
     Active Substance: VENETOCLAX
     Dosage: 200 MILLIGRAM
     Route: 048
     Dates: start: 20170214, end: 20170414
  13. VENETOCLAX. [Concomitant]
     Active Substance: VENETOCLAX
     Dosage: 400 MILLIGRAM
     Route: 048
     Dates: start: 20170215, end: 20171023
  14. LEVETIRACETAM. [Concomitant]
     Active Substance: LEVETIRACETAM
     Indication: SEIZURE
     Dosage: 500 MILLIGRAM
     Route: 048
     Dates: start: 20140513
  15. CHLORHEXIDINE GLUCONATE. [Concomitant]
     Active Substance: CHLORHEXIDINE GLUCONATE
     Indication: PROPHYLAXIS
     Dosage: 10 MILLILITER
     Route: 065
     Dates: start: 20170206
  16. LISINOPRIL. [Concomitant]
     Active Substance: LISINOPRIL
     Indication: HYPERTENSION
     Dosage: 5 MILLIGRAM
     Route: 048
     Dates: start: 20140513
  17. ARIPIPRAZOLE. [Concomitant]
     Active Substance: ARIPIPRAZOLE
     Indication: DELIRIUM
     Dosage: 2 MILLIGRAM
     Route: 048
     Dates: start: 20170228
  18. POTASSIUM CHLORIDE. [Concomitant]
     Active Substance: POTASSIUM CHLORIDE
     Indication: HYPOKALAEMIA
     Dosage: 29 MILLIEQUIVALENTS
     Route: 048
     Dates: start: 20170404
  19. VENETOCLAX. [Concomitant]
     Active Substance: VENETOCLAX
     Indication: ACUTE MYELOID LEUKAEMIA
     Dosage: 100 MILLIGRAM
     Route: 048
     Dates: start: 20170213, end: 20170213
  20. GLIPIZIDE. [Concomitant]
     Active Substance: GLIPIZIDE
     Indication: DIABETES MELLITUS
     Dosage: 5 MILLIGRAM
     Route: 048
     Dates: start: 20140513
  21. LORATADINE. [Concomitant]
     Active Substance: LORATADINE
     Indication: SEASONAL ALLERGY
     Dosage: 10 MILLIGRAM
     Route: 048
     Dates: start: 20170207
  22. ARIPIPRAZOLE. [Concomitant]
     Active Substance: ARIPIPRAZOLE
     Dosage: 2 MILLIGRAM
     Route: 048
     Dates: start: 20170327
  23. METFORMIN [Concomitant]
     Active Substance: METFORMIN HYDROCHLORIDE
     Dosage: 500 MILLIGRAM
     Route: 048
     Dates: start: 20170523
  24. AZACITIDINE. [Suspect]
     Active Substance: AZACITIDINE
     Indication: ACUTE MYELOID LEUKAEMIA
     Route: 058
     Dates: start: 20170213, end: 20171008
  25. AMPHOTERICIN B. [Concomitant]
     Active Substance: AMPHOTERICIN B
     Indication: MUCOSAL INFLAMMATION
     Dosage: 40 MILLILITER
     Route: 048
     Dates: start: 20170418
  26. INSULIN BOVINE [Concomitant]
     Indication: DIABETES MELLITUS
     Dosage: 1-6 UNITS
     Route: 058
     Dates: start: 20170206
  27. DIPHENHYDRAMINE HYDROCHLORIDE. [Concomitant]
     Active Substance: DIPHENHYDRAMINE HYDROCHLORIDE
     Indication: TRANSFUSION
     Dosage: 25 MILLIGRAM
     Route: 041
     Dates: start: 20170206
  28. DOCUSATE SODIUM. [Concomitant]
     Active Substance: DOCUSATE SODIUM
     Indication: CONSTIPATION PROPHYLAXIS
     Dosage: 8.5-50 MG
     Route: 048
     Dates: start: 20170320

REACTIONS (2)
  - Sepsis [Fatal]
  - Sepsis [Recovered/Resolved]

NARRATIVE: CASE EVENT DATE: 20171119
